FAERS Safety Report 7201803-0 (Version None)
Quarter: 2010Q4

REPORT INFORMATION
  Report Type: 
  Country: None (occurrence: None)
  Receive Date: 20101229
  Receipt Date: 20101215
  Transmission Date: 20110411
  Serious: Yes (Hospitalization, Other)
  Sender: FDA-Public Use
  Company Number: US-BAYER-2010-005860

PATIENT
  Sex: Female

DRUGS (1)
  1. MIRENA [Suspect]
     Indication: CONTRACEPTION
     Dosage: DAILY DOSE 20 A?G
     Route: 015
     Dates: start: 20080901, end: 20100101

REACTIONS (4)
  - INFERTILITY FEMALE [None]
  - INTRA-ABDOMINAL HAEMORRHAGE [None]
  - OVARIAN CYST RUPTURED [None]
  - PAIN [None]
